FAERS Safety Report 17912866 (Version 5)
Quarter: 2020Q4

REPORT INFORMATION
  Report Type: Other
  Country: CN (occurrence: CN)
  Receive Date: 20200618
  Receipt Date: 20201224
  Transmission Date: 20210113
  Serious: Yes (Other)
  Sender: FDA-Public Use
  Company Number: CN-ROCHE-2625735

PATIENT
  Age: 62 Year
  Sex: Female
  Weight: 47 kg

DRUGS (4)
  1. AVASTIN [Suspect]
     Active Substance: BEVACIZUMAB
     Route: 041
     Dates: start: 20200814, end: 20200818
  2. AVASTIN [Suspect]
     Active Substance: BEVACIZUMAB
     Route: 041
     Dates: start: 20170815, end: 20190519
  3. AVASTIN [Suspect]
     Active Substance: BEVACIZUMAB
     Route: 041
  4. AVASTIN [Suspect]
     Active Substance: BEVACIZUMAB
     Indication: COLON CANCER
     Route: 041
     Dates: start: 20160914

REACTIONS (2)
  - Lung disorder [Unknown]
  - Lung neoplasm [Not Recovered/Not Resolved]
